FAERS Safety Report 9529521 (Version 1)
Quarter: 2013Q2

REPORT INFORMATION
  Report Type: Spontaneous
  Country: US (occurrence: None)
  Receive Date: 20130401
  Receipt Date: 20130401
  Transmission Date: 20140414
  Serious: Yes (Hospitalization, Disabling)
  Sender: FDA-Public Use
  Company Number: PHEH2012US004252

PATIENT
  Age: 81 Year
  Sex: Female
  Weight: 73.7 kg

DRUGS (15)
  1. EXELON PATCH [Suspect]
     Indication: COGNITIVE DISORDER
     Dosage: 4.6 MG/24 HOURS, TRANSDERMAL
     Route: 062
     Dates: start: 20120125, end: 20120223
  2. NAMENDA (MEMANTINE HYDOCHLORIDE) [Concomitant]
  3. BENAZEPRIL (BENAZEPRIL) [Concomitant]
  4. CLONIDINE (CLONIDINE) [Concomitant]
  5. AMLODIPINE (AMLODIPINE) [Concomitant]
  6. BYSTOLIC (NEBIVOLOL HYDROCHLORIDE) [Concomitant]
  7. OMEPRAZOLE (OMEPRAZOLE) [Concomitant]
  8. METFORMIN (METFORMIN) [Concomitant]
  9. SIMVASTATIN (SIMVASTATIN) [Concomitant]
  10. GLIMEPIRIDE (GLIMEPIRIDE) [Concomitant]
  11. CITRACAL (CALCIUM CITRATE) [Concomitant]
  12. B12 (CYANOCOBALAMIN-TANNIN COMPLEX0 [Concomitant]
  13. VITAMIN C [Concomitant]
  14. TYLENOL (PARACETAMOL) [Concomitant]
  15. OSTEO BI-FLEX (CHONDROITIN SULFATE, GLUCOSAMINE HYDROCHLORIDE) [Concomitant]

REACTIONS (4)
  - Headache [None]
  - Blood pressure increased [None]
  - Chills [None]
  - Decreased appetite [None]
